FAERS Safety Report 7816423-4 (Version None)
Quarter: 2011Q4

REPORT INFORMATION
  Report Type: 
  Country: None (occurrence: None)
  Receive Date: 20111017
  Receipt Date: 20111006
  Transmission Date: 20120403
  Serious: Yes (Hospitalization)
  Sender: FDA-Public Use
  Company Number: BE-AMGEN-BELSP2011052112

PATIENT
  Age: 82 Year
  Sex: Female

DRUGS (8)
  1. PROLOPA [Concomitant]
     Dosage: 250 MG, 1X/DAY
  2. ISOTEN [Concomitant]
     Dosage: UNK
  3. TAMBOCOR [Concomitant]
     Dosage: UNK
  4. ENBREL [Suspect]
     Indication: RHEUMATOID ARTHRITIS
     Dosage: 50 MG, WEEKLY
     Route: 058
     Dates: start: 20100401, end: 20110220
  5. D-CURE [Concomitant]
     Dosage: UNK
  6. PROTELOS [Concomitant]
     Dosage: 2 G, 1X/DAY
     Route: 048
  7. ORENCIA [Concomitant]
     Dosage: 500 MG, UNK
  8. ZOLEDRONOC ACID [Concomitant]
     Dosage: UNK

REACTIONS (1)
  - LUNG DISORDER [None]
